FAERS Safety Report 16351087 (Version 1)
Quarter: 2019Q2

REPORT INFORMATION
  Report Type: Spontaneous
  Country: SE (occurrence: SE)
  Receive Date: 20190524
  Receipt Date: 20190524
  Transmission Date: 20190711
  Serious: Yes (Other)
  Sender: FDA-Public Use
  Company Number: SE-TEVA-2019-SE-1055608

PATIENT
  Sex: Male

DRUGS (1)
  1. METFORMIN ACTAVIS [Suspect]
     Active Substance: METFORMIN HYDROCHLORIDE
     Route: 065

REACTIONS (5)
  - Hypotonia [Unknown]
  - Gait disturbance [Unknown]
  - Lethargy [Unknown]
  - Polyneuropathy [Unknown]
  - Weight decreased [Unknown]
